APPROVED DRUG PRODUCT: ENSTILAR
Active Ingredient: BETAMETHASONE DIPROPIONATE; CALCIPOTRIENE
Strength: 0.064%;0.005%
Dosage Form/Route: AEROSOL, FOAM;TOPICAL
Application: N207589 | Product #001
Applicant: LEO PHARMA AS
Approved: Oct 16, 2015 | RLD: Yes | RS: Yes | Type: RX

PATENTS:
Patent 9119781 | Expires: Jun 10, 2031
Patent 9119781 | Expires: Jun 10, 2031
Patent 10688108 | Expires: Jun 10, 2031
Patent 10660908 | Expires: Jun 10, 2031
Patent 9566286 | Expires: Jun 10, 2031
Patent 10130640 | Expires: Jun 10, 2031
Patent 10617698 | Expires: Jun 10, 2031
Patent 10682364 | Expires: Jun 10, 2031
Patent 10716799 | Expires: Jun 10, 2031
Patent 9119781*PED | Expires: Dec 10, 2031
Patent 10130640*PED | Expires: Dec 10, 2031